FAERS Safety Report 17084559 (Version 1)
Quarter: 2019Q4

REPORT INFORMATION
  Report Type: Other
  Country: GB (occurrence: GB)
  Receive Date: 20191127
  Receipt Date: 20191127
  Transmission Date: 20200122
  Serious: Yes (Hospitalization)
  Sender: FDA-Public Use
  Company Number: GB-CELLTRION INC.-2018GB017186

PATIENT

DRUGS (17)
  1. BISOPROLOL [Concomitant]
     Active Substance: BISOPROLOL
  2. ISOSORBIDE MONONITRATE. [Concomitant]
     Active Substance: ISOSORBIDE MONONITRATE
  3. TRUXIMA [Suspect]
     Active Substance: RITUXIMAB-ABBS
     Indication: PRODUCT USED FOR UNKNOWN INDICATION
     Dosage: 1 G
     Route: 042
     Dates: start: 20171013, end: 20171013
  4. DIGOXIN. [Concomitant]
     Active Substance: DIGOXIN
  5. BUMETANIDE. [Concomitant]
     Active Substance: BUMETANIDE
  6. PARACETAMOL [Concomitant]
     Active Substance: ACETAMINOPHEN
  7. TIOTROPIUM [Concomitant]
     Active Substance: TIOTROPIUM
  8. SALBUTAMOL [Concomitant]
     Active Substance: ALBUTEROL
  9. ADCAL D3 [Concomitant]
     Active Substance: CALCIUM CARBONATE\CHOLECALCIFEROL
  10. SPIRONOLACTONE. [Concomitant]
     Active Substance: SPIRONOLACTONE
  11. FOLIC ACID. [Concomitant]
     Active Substance: FOLIC ACID
  12. OMEPRAZOLE. [Concomitant]
     Active Substance: OMEPRAZOLE
  13. APIXABAN [Concomitant]
     Active Substance: APIXABAN
  14. PREDNISOLONE. [Concomitant]
     Active Substance: PREDNISOLONE
  15. GLYCERYL TRINITRATE [Concomitant]
     Active Substance: NITROGLYCERIN
  16. SYMBICORT [Concomitant]
     Active Substance: BUDESONIDE\FORMOTEROL FUMARATE DIHYDRATE
  17. SYSTANE (HYPROMELLOSE 2910 (4000 MPA.S)) [Concomitant]
     Active Substance: HYPROMELLOSE 2910 (4000 MPA.S)

REACTIONS (5)
  - Dyspnoea [Recovering/Resolving]
  - Localised oedema [Recovering/Resolving]
  - Atrial fibrillation [Recovering/Resolving]
  - Oedema peripheral [Recovering/Resolving]
  - Oedema peripheral [Recovered/Resolved]

NARRATIVE: CASE EVENT DATE: 20171027
